FAERS Safety Report 8977547 (Version 2)
Quarter: 2013Q1

REPORT INFORMATION
  Report Type: Spontaneous
  Country: US (occurrence: US)
  Receive Date: 20121220
  Receipt Date: 20130215
  Transmission Date: 20140127
  Serious: Yes (Death)
  Sender: FDA-Public Use
  Company Number: US-ELI_LILLY_AND_COMPANY-US201208002667

PATIENT
  Age: 80 Year
  Sex: Female

DRUGS (2)
  1. FORTEO [Suspect]
     Indication: OSTEOPOROSIS
     Dosage: 20 UG, QD
     Dates: start: 20120731
  2. FORTEO [Suspect]
     Dosage: 20 UG, QD
     Dates: start: 20120731

REACTIONS (6)
  - Death [Fatal]
  - Heart rate increased [Unknown]
  - Blood pressure decreased [Unknown]
  - Feeling abnormal [Recovered/Resolved]
  - Gait disturbance [Unknown]
  - Aphasia [Unknown]
